FAERS Safety Report 9030927 (Version 2)
Quarter: 2013Q1

REPORT INFORMATION
  Report Type: Report from Study
  Country: US (occurrence: US)
  Receive Date: 20130123
  Receipt Date: 20130128
  Transmission Date: 20140127
  Serious: Yes (Death)
  Sender: FDA-Public Use
  Company Number: US-ROCHE-1182555

PATIENT
  Sex: Male
  Weight: 83.08 kg

DRUGS (5)
  1. AVASTIN [Suspect]
     Indication: COLORECTAL CANCER
     Route: 042
     Dates: start: 20120117, end: 20120522
  2. CPT-11 [Concomitant]
     Indication: COLORECTAL CANCER
     Route: 065
     Dates: start: 20120117, end: 20120522
  3. 5-FU [Concomitant]
     Indication: COLORECTAL CANCER
     Route: 065
     Dates: start: 20120117, end: 20120522
  4. 5-FU [Concomitant]
     Route: 065
     Dates: start: 20120117, end: 20120522
  5. LEUCOVORIN [Concomitant]
     Indication: COLORECTAL CANCER
     Route: 042
     Dates: start: 20120117, end: 20120522

REACTIONS (1)
  - Death [Fatal]
